FAERS Safety Report 7299470-3 (Version None)
Quarter: 2011Q1

REPORT INFORMATION
  Report Type: 
  Country: None (occurrence: None)
  Receive Date: 20110217
  Receipt Date: 20110211
  Transmission Date: 20110831
  Serious: Yes (Hospitalization)
  Sender: FDA-Public Use
  Company Number: B0700551A

PATIENT
  Sex: Female

DRUGS (2)
  1. AUGMENTIN '125' [Suspect]
     Dosage: 2G PER DAY
     Route: 048
     Dates: start: 20110127, end: 20110129
  2. OKI [Suspect]
     Dosage: 160MG PER DAY
     Route: 048
     Dates: start: 20110127, end: 20110129

REACTIONS (3)
  - PRURITUS GENERALISED [None]
  - IATROGENIC INJURY [None]
  - DERMATITIS [None]
